FAERS Safety Report 6763965-9 (Version None)
Quarter: 2010Q2

REPORT INFORMATION
  Report Type: 
  Country: None (occurrence: None)
  Receive Date: 20100610
  Receipt Date: 20100603
  Transmission Date: 20101027
  Serious: Yes (Hospitalization)
  Sender: FDA-Public Use
  Company Number: US-KINGPHARMUSA00001-K201000201

PATIENT
  Age: 39 Year
  Sex: Female

DRUGS (1)
  1. EMBEDA [Suspect]
     Indication: PAIN
     Dosage: 30 MG, SINGLE
     Route: 048
     Dates: start: 20091001, end: 20091001

REACTIONS (10)
  - GASTROINTESTINAL SOUNDS ABNORMAL [None]
  - HEART RATE INCREASED [None]
  - INTENTIONAL DRUG MISUSE [None]
  - MYDRIASIS [None]
  - NAUSEA [None]
  - PAIN [None]
  - PILOERECTION [None]
  - RESPIRATORY RATE INCREASED [None]
  - VOMITING [None]
  - WITHDRAWAL SYNDROME [None]
